FAERS Safety Report 21481394 (Version 1)
Quarter: 2022Q4

REPORT INFORMATION
  Report Type: Report from Study
  Country: US (occurrence: US)
  Receive Date: 20221019
  Receipt Date: 20221019
  Transmission Date: 20230112
  Serious: Yes (Other)
  Sender: FDA-Public Use
  Company Number: US-SA-SAC20221014001029

PATIENT
  Age: 37 Year
  Sex: Female

DRUGS (6)
  1. ALEMTUZUMAB [Suspect]
     Active Substance: ALEMTUZUMAB
     Indication: Multiple sclerosis
     Dosage: 12 MG, QD
     Route: 041
     Dates: start: 20181008, end: 20181012
  2. ALEMTUZUMAB [Suspect]
     Active Substance: ALEMTUZUMAB
     Dosage: 12 MG, QD
     Route: 041
  3. REBIF [Concomitant]
     Active Substance: INTERFERON BETA-1A
  4. AUBAGIO [Concomitant]
     Active Substance: TERIFLUNOMIDE
  5. AVONEX [Concomitant]
     Active Substance: INTERFERON BETA-1A
  6. TECFIDERA [Concomitant]
     Active Substance: DIMETHYL FUMARATE

REACTIONS (1)
  - Autoimmune disorder [Unknown]
